FAERS Safety Report 6033453-6 (Version None)
Quarter: 2009Q1

REPORT INFORMATION
  Report Type: 
  Country: None (occurrence: None)
  Receive Date: 20090109
  Receipt Date: 20090105
  Transmission Date: 20090719
  Serious: Yes (Death, Life-Threatening, Other)
  Sender: FDA-Public Use
  Company Number: JP-ABBOTT-08P-087-0492461-00

PATIENT
  Sex: Female
  Weight: 45.4 kg

DRUGS (8)
  1. HUMIRA [Suspect]
     Indication: RHEUMATOID ARTHRITIS
     Route: 058
     Dates: start: 20081118, end: 20081202
  2. HUMIRA [Suspect]
     Route: 058
     Dates: start: 20081118, end: 20081202
  3. PREDNISOLONE [Concomitant]
     Indication: DRUG USE FOR UNKNOWN INDICATION
     Route: 048
     Dates: start: 20081009
  4. OMEPRAZOLE [Concomitant]
     Indication: DRUG USE FOR UNKNOWN INDICATION
     Route: 048
     Dates: start: 20060617
  5. NIFEDIPINE [Concomitant]
     Indication: DRUG USE FOR UNKNOWN INDICATION
     Route: 048
     Dates: start: 20080131, end: 20081211
  6. ALENDRONATE SODIUM [Concomitant]
     Indication: DRUG USE FOR UNKNOWN INDICATION
     Route: 048
     Dates: start: 20070424, end: 20081211
  7. INSULIN [Concomitant]
     Indication: DIABETES MELLITUS
     Route: 058
     Dates: start: 20081017
  8. INSULIN ASPART [Concomitant]
     Indication: DIABETES MELLITUS
     Route: 058
     Dates: start: 20081017

REACTIONS (5)
  - BLOOD PRESSURE ABNORMAL [None]
  - CARDIOVASCULAR INSUFFICIENCY [None]
  - COUGH [None]
  - PNEUMOCYSTIS JIROVECI PNEUMONIA [None]
  - RESPIRATORY FAILURE [None]
